FAERS Safety Report 12672116 (Version 2)
Quarter: 2016Q3

REPORT INFORMATION
  Report Type: Spontaneous
  Country: US (occurrence: US)
  Receive Date: 20160822
  Receipt Date: 20160829
  Transmission Date: 20161109
  Serious: No
  Sender: FDA-Public Use
  Company Number: US-BAYER-2016-153886

PATIENT
  Age: 35 Year
  Sex: Male
  Weight: 72.56 kg

DRUGS (1)
  1. ZEGERID OTC CAPSULES [Suspect]
     Active Substance: OMEPRAZOLE\SODIUM BICARBONATE
     Indication: DYSPEPSIA
     Dosage: 1 DF, QD
     Route: 048
     Dates: start: 201606, end: 201607

REACTIONS (5)
  - Abdominal pain [Recovered/Resolved]
  - Nausea [None]
  - Diarrhoea [Recovered/Resolved]
  - Drug eruption [Not Recovered/Not Resolved]
  - Product use issue [None]

NARRATIVE: CASE EVENT DATE: 201606
